FAERS Safety Report 21326015 (Version 3)
Quarter: 2023Q2

REPORT INFORMATION
  Report Type: Spontaneous
  Country: US (occurrence: US)
  Receive Date: 20220913
  Receipt Date: 20230531
  Transmission Date: 20230721
  Serious: Yes (Death, Life-Threatening, Hospitalization, Other)
  Sender: FDA-Public Use
  Company Number: US-AMGEN-USASP2022155342

PATIENT

DRUGS (2)
  1. BEVACIZUMAB [Suspect]
     Active Substance: BEVACIZUMAB
     Indication: Ovarian epithelial cancer
     Dosage: UNK
     Route: 065
  2. NEULASTA [Suspect]
     Active Substance: PEGFILGRASTIM
     Indication: Prophylaxis
     Dosage: UNK
     Route: 065

REACTIONS (16)
  - Death [Fatal]
  - Thrombocytopenia [Unknown]
  - Haematotoxicity [Unknown]
  - Cardiotoxicity [Unknown]
  - Pulmonary toxicity [Unknown]
  - Neurotoxicity [Unknown]
  - Unevaluable event [Unknown]
  - Hypersensitivity [Unknown]
  - Neutropenia [Unknown]
  - Nephropathy toxic [Unknown]
  - Malignant neoplasm progression [Unknown]
  - Gastrointestinal toxicity [Unknown]
  - Skin toxicity [Unknown]
  - Drug intolerance [Unknown]
  - Fatigue [Unknown]
  - Therapy partial responder [Unknown]
